FAERS Safety Report 9817746 (Version 1)
Quarter: 2014Q1

REPORT INFORMATION
  Report Type: Report from Study
  Country: US (occurrence: US)
  Receive Date: 20140115
  Receipt Date: 20140115
  Transmission Date: 20141002
  Serious: Yes (Hospitalization)
  Sender: FDA-Public Use
  Company Number: US-ROCHE-1332452

PATIENT
  Age: 42 Year
  Sex: Female

DRUGS (42)
  1. PREDNISONE [Concomitant]
     Route: 065
     Dates: start: 20131216
  2. DULERA [Concomitant]
     Route: 065
  3. PRAMOSONE [Concomitant]
     Route: 065
  4. FLUCONAZOLE [Concomitant]
     Route: 065
  5. ZOLOFT [Concomitant]
     Route: 065
  6. EPIPEN [Concomitant]
     Route: 065
  7. ACETAMINOPHEN W CAFFEINE [Concomitant]
     Route: 065
  8. FUROSEMIDE [Concomitant]
     Route: 065
  9. LEVOTHYROXINE SODIUM [Concomitant]
     Route: 065
  10. SINGULAIR [Concomitant]
     Route: 065
  11. XOPENEX HFA [Concomitant]
     Route: 065
  12. ZYRTEC [Concomitant]
     Route: 065
  13. FLONASE [Concomitant]
  14. ASPIRIN, CHILDREN^S [Concomitant]
     Route: 065
  15. PLAQUENIL [Concomitant]
     Route: 065
  16. OMEPRAZOLE [Concomitant]
     Route: 065
  17. XOLAIR [Suspect]
     Indication: ASTHMA
     Route: 058
     Dates: start: 20031217
  18. XOLAIR [Suspect]
     Route: 058
     Dates: start: 20131111
  19. XOLAIR [Suspect]
     Route: 058
     Dates: start: 20131203
  20. XOLAIR [Suspect]
     Route: 058
     Dates: start: 20131216
  21. XOLAIR [Suspect]
     Route: 058
     Dates: start: 20131230
  22. XOLAIR [Suspect]
     Route: 058
     Dates: start: 20140109
  23. XOLAIR [Suspect]
     Route: 058
     Dates: start: 20131021
  24. XOLAIR [Suspect]
     Route: 058
     Dates: start: 20131021
  25. XOLAIR [Suspect]
     Route: 058
     Dates: start: 20130731
  26. XOLAIR [Suspect]
     Route: 058
     Dates: start: 20130731
  27. XOLAIR [Suspect]
     Route: 058
     Dates: start: 20130815
  28. XOLAIR [Suspect]
     Route: 058
     Dates: start: 20130828
  29. XOLAIR [Suspect]
     Route: 058
     Dates: start: 20130909
  30. XOLAIR [Suspect]
     Route: 058
     Dates: start: 20130923
  31. XOLAIR [Suspect]
     Route: 058
     Dates: start: 20131007
  32. BONIVA [Suspect]
     Indication: PRODUCT USED FOR UNKNOWN INDICATION
     Route: 065
  33. PREDNISONE [Concomitant]
     Route: 065
     Dates: start: 20130815
  34. PREDNISONE [Concomitant]
     Route: 065
  35. PREDNISONE [Concomitant]
     Dosage: 3 DAYS
     Route: 065
     Dates: start: 20140109
  36. PREDNISONE [Concomitant]
     Route: 065
     Dates: start: 20130731
  37. PREDNISONE [Concomitant]
     Route: 065
     Dates: start: 20130828
  38. PREDNISONE [Concomitant]
     Route: 065
     Dates: start: 20130909
  39. PREDNISONE [Concomitant]
     Route: 065
     Dates: start: 20130923
  40. PREDNISONE [Concomitant]
     Route: 065
     Dates: start: 20131007
  41. PREDNISONE [Concomitant]
     Route: 065
     Dates: start: 20131021
  42. PREDNISONE [Concomitant]
     Route: 065
     Dates: start: 20131111

REACTIONS (9)
  - Asthma [Unknown]
  - Sleep disorder [Unknown]
  - Wheezing [Unknown]
  - Cough [Unknown]
  - Dyspnoea [Unknown]
  - Productive cough [Unknown]
  - Fibromyalgia [Unknown]
  - Oedema [Unknown]
  - Hypersensitivity [Unknown]
